FAERS Safety Report 4466977-3 (Version None)
Quarter: 2004Q3

REPORT INFORMATION
  Report Type: 
  Country: None (occurrence: None)
  Receive Date: 20040930
  Receipt Date: 20040920
  Transmission Date: 20050211
  Serious: Yes (Other)
  Sender: FDA-Public Use
  Company Number: A0526489A

PATIENT
  Age: 54 Year
  Sex: Male
  Weight: 127.0525 kg

DRUGS (3)
  1. GAVISCON [Suspect]
     Indication: GASTROOESOPHAGEAL REFLUX DISEASE
     Dosage: ORAL
     Route: 048
     Dates: start: 20040301
  2. SERTRALINE HYDROCHLORIDE [Concomitant]
  3. BLOOD PRESSURE MEDICATION [Concomitant]

REACTIONS (3)
  - DISEASE RECURRENCE [None]
  - DIZZINESS [None]
  - NEPHROLITHIASIS [None]
